FAERS Safety Report 8609710-3 (Version None)
Quarter: 2012Q3

REPORT INFORMATION
  Report Type: 
  Country: None (occurrence: None)
  Receive Date: 20120821
  Receipt Date: 20120816
  Transmission Date: 20120928
  Serious: Yes (Death)
  Sender: FDA-Public Use
  Company Number: PH-BAXTER-2012BAX014717

PATIENT
  Sex: Female

DRUGS (5)
  1. DIANEAL PD-2 W/ DEXTROSE 4.25% [Suspect]
     Route: 033
     Dates: start: 20120219
  2. EPO [Concomitant]
  3. DIANEAL PD-2 W/ DEXTROSE 1.5% [Suspect]
     Route: 033
     Dates: start: 20120219
  4. IRON SULFATETHIAMIN COMPOUND TAB [Concomitant]
  5. AMLODIPINE [Concomitant]

REACTIONS (1)
  - CARDIAC ARREST [None]
